FAERS Safety Report 13710403 (Version 1)
Quarter: 2017Q3

REPORT INFORMATION
  Report Type: Spontaneous
  Country: IN (occurrence: IN)
  Receive Date: 20170703
  Receipt Date: 20170703
  Transmission Date: 20171127
  Serious: Yes (Other)
  Sender: FDA-Public Use
  Company Number: IN-SUN PHARMACEUTICAL INDUSTRIES LTD-2016R1-116068

PATIENT
  Age: 27 Year
  Sex: Female

DRUGS (3)
  1. HYDROCORTISONE. [Suspect]
     Active Substance: HYDROCORTISONE
     Indication: POSTPARTUM HYPOPITUITARISM
     Dosage: 30 MG IN DIVIDED DOSES
     Route: 065
  2. THYROXIN [Concomitant]
     Active Substance: LEVOTHYROXINE
     Indication: POSTPARTUM HYPOPITUITARISM
     Dosage: 25 UG
     Route: 065
  3. HYDROCORTISONE. [Suspect]
     Active Substance: HYDROCORTISONE
     Dosage: 20 MG, DAILY
     Route: 065

REACTIONS (1)
  - Psychotic disorder [Recovering/Resolving]
